FAERS Safety Report 10182208 (Version 1)
Quarter: 2014Q2

REPORT INFORMATION
  Report Type: Spontaneous
  Country: US (occurrence: US)
  Receive Date: 20140520
  Receipt Date: 20140520
  Transmission Date: 20141212
  Serious: No
  Sender: FDA-Public Use
  Company Number: US-BIOGENIDEC-2014BI043274

PATIENT
  Age: 83 Year
  Sex: Female

DRUGS (1)
  1. AVONEX [Suspect]
     Indication: MULTIPLE SCLEROSIS
     Route: 030
     Dates: start: 19990101

REACTIONS (4)
  - Screaming [Recovered/Resolved]
  - Skin injury [Recovered/Resolved]
  - Injury associated with device [Recovered/Resolved]
  - Drug dose omission [Recovered/Resolved]
